FAERS Safety Report 8985414 (Version 1)
Quarter: 2012Q4

REPORT INFORMATION
  Report Type: 
  Country: IL (occurrence: IL)
  Receive Date: 20121226
  Receipt Date: 20121226
  Transmission Date: 20130627
  Serious: Yes (Death)
  Sender: FDA-Public Use
  Company Number: IL-PFIZER INC-2012323869

PATIENT
  Sex: Male

DRUGS (3)
  1. AXITINIB [Suspect]
     Indication: RENAL CELL CARCINOMA
     Dosage: 5 mg, 2x/day
     Route: 048
  2. AXITINIB [Suspect]
     Dosage: 3 mg, 2x/day
     Route: 048
  3. FUSID [Concomitant]

REACTIONS (1)
  - Renal failure [Fatal]
